FAERS Safety Report 9895993 (Version 2)
Quarter: 2014Q1

REPORT INFORMATION
  Report Type: Spontaneous
  Country: US (occurrence: US)
  Receive Date: 20140213
  Receipt Date: 20140213
  Transmission Date: 20141002
  Serious: No
  Sender: FDA-Public Use
  Company Number: US-BRISTOL-MYERS SQUIBB COMPANY-18767459

PATIENT
  Age: 61 Year
  Sex: Female
  Weight: 66.21 kg

DRUGS (1)
  1. ABATACEPT SUBQ INJECTION 125MG/ML [Suspect]
     Indication: RHEUMATOID ARTHRITIS
     Dosage: PRESCRIPTION #: 992831?LAST INF:ABOUT 6 WEEKS AGO
     Route: 058

REACTIONS (7)
  - Abdominal pain upper [Recovered/Resolved]
  - Influenza [Unknown]
  - Rheumatoid arthritis [Recovered/Resolved]
  - Alopecia [Recovered/Resolved]
  - Skin disorder [Recovered/Resolved]
  - Back pain [Unknown]
  - Drug ineffective [Unknown]
